FAERS Safety Report 7597319-2 (Version None)
Quarter: 2011Q3

REPORT INFORMATION
  Report Type: 
  Country: None (occurrence: None)
  Receive Date: 20110708
  Receipt Date: 20110430
  Transmission Date: 20111222
  Serious: No
  Sender: FDA-Public Use
  Company Number: US-GLAXOSMITHKLINE-A0926136A

PATIENT
  Sex: Male

DRUGS (1)
  1. FLOVENT [Suspect]
     Route: 065
     Dates: start: 20110101

REACTIONS (2)
  - UPPER-AIRWAY COUGH SYNDROME [None]
  - DYSPHONIA [None]
